FAERS Safety Report 21512934 (Version 1)
Quarter: 2022Q4

REPORT INFORMATION
  Report Type: Spontaneous
  Country: DE (occurrence: DE)
  Receive Date: 20221027
  Receipt Date: 20221027
  Transmission Date: 20230113
  Serious: Yes (Hospitalization, Other)
  Sender: FDA-Public Use
  Company Number: None

PATIENT
  Age: 67 Year
  Sex: Male

DRUGS (12)
  1. PREGABALIN [Suspect]
     Active Substance: PREGABALIN
     Indication: Product used for unknown indication
     Dosage: 150 MILLIGRAM, TID, EVERY 8 HOUR
     Route: 065
  2. QUETIAPINE FUMARATE [Suspect]
     Active Substance: QUETIAPINE FUMARATE
     Indication: Product used for unknown indication
     Dosage: 500 MILLIGRAM, QD, EVERY 1 DAY
     Route: 065
  3. MIRTAZAPINE [Suspect]
     Active Substance: MIRTAZAPINE
     Indication: Product used for unknown indication
     Dosage: 30 MILLIGRAM, QD, EVERY 1 DAY
     Route: 065
  4. RISPERIDONE [Suspect]
     Active Substance: RISPERIDONE
     Indication: Product used for unknown indication
     Dosage: 2 MILLIGRAM, QD, EVERY 1 DAY
     Route: 065
  5. SERTRALINE HYDROCHLORIDE [Suspect]
     Active Substance: SERTRALINE HYDROCHLORIDE
     Indication: Product used for unknown indication
     Dosage: 100 MILLIGRAM, QD, EVERY 1 DAY
     Route: 065
  6. BIOLECTRA [Concomitant]
     Indication: Product used for unknown indication
     Dosage: 400 MILLIGRAM, QD, EVERY 1 DAY
     Route: 065
  7. Disodium Phosphate, Sodium Dihydrogen Phosphate [Concomitant]
     Indication: Product used for unknown indication
     Dosage: UNK
     Route: 065
  8. Eryfer 100 MG [Concomitant]
     Indication: Product used for unknown indication
     Dosage: 100 MILLIGRAM, QD, EVERY 1 DAY
     Route: 065
  9. L-Thyrox HEXAL 50 MIKROGRAMM [Concomitant]
     Indication: Product used for unknown indication
     Dosage: 50 MICROGRAM, QD, EVERY 1 DAY
     Route: 065
  10. Lactulose 1 A Pharma [Concomitant]
     Indication: Product used for unknown indication
     Dosage: UNK
     Route: 065
  11. Macrogol 1 A Pharma [Concomitant]
     Indication: Product used for unknown indication
     Dosage: UNK
     Route: 065
  12. Pantoprazol 1A Pharma 40 MG [Concomitant]
     Indication: Product used for unknown indication
     Dosage: 80 MILLIGRAM, QD, EVERY 1 DAY
     Route: 065

REACTIONS (2)
  - Syncope [Unknown]
  - Fall [Unknown]

NARRATIVE: CASE EVENT DATE: 20191012
